FAERS Safety Report 5902123-4 (Version None)
Quarter: 2008Q3

REPORT INFORMATION
  Report Type: 
  Country: None (occurrence: None)
  Receive Date: 20080925
  Receipt Date: 20080916
  Transmission Date: 20090109
  Serious: Yes (Hospitalization)
  Sender: FDA-Public Use
  Company Number: 2008BI000200

PATIENT
  Age: 59 Year
  Sex: Female

DRUGS (5)
  1. AVONEX [Suspect]
     Indication: MULTIPLE SCLEROSIS
     Dosage: 30 UG;QW;IM, 30 UG;QW;IM
     Route: 030
     Dates: start: 19960419, end: 20030801
  2. AVONEX [Suspect]
     Indication: MULTIPLE SCLEROSIS
     Dosage: 30 UG;QW;IM, 30 UG;QW;IM
     Route: 030
     Dates: start: 20030801
  3. BLOOD PRESSURE MEDICATION [Concomitant]
  4. ............................ [Concomitant]
  5. TYLENOL (CAPLET) [Concomitant]

REACTIONS (16)
  - ABASIA [None]
  - BLINDNESS [None]
  - BRONCHITIS [None]
  - CONDITION AGGRAVATED [None]
  - DIZZINESS [None]
  - FATIGUE [None]
  - INFLUENZA [None]
  - MULTIPLE SCLEROSIS [None]
  - MUSCLE ATROPHY [None]
  - NAUSEA [None]
  - PERSONALITY CHANGE DUE TO A GENERAL MEDICAL CONDITION [None]
  - PNEUMONIA [None]
  - SCAR [None]
  - THERMAL BURN [None]
  - URINARY INCONTINENCE [None]
  - WEIGHT FLUCTUATION [None]
